FAERS Safety Report 5508555-0 (Version None)
Quarter: 2007Q4

REPORT INFORMATION
  Report Type: 
  Country: None (occurrence: None)
  Receive Date: 20071107
  Receipt Date: 20071026
  Transmission Date: 20080405
  Serious: Yes (Other)
  Sender: FDA-Public Use
  Company Number: HQWYE711703AUG04

PATIENT
  Sex: Female

DRUGS (2)
  1. PREMARIN [Suspect]
  2. PREDNISONE [Suspect]

REACTIONS (4)
  - BREAST CANCER [None]
  - DEPRESSION [None]
  - SEXUAL DYSFUNCTION [None]
  - WEIGHT INCREASED [None]
